FAERS Safety Report 7257379-5 (Version None)
Quarter: 2011Q1

REPORT INFORMATION
  Report Type: 
  Country: None (occurrence: None)
  Receive Date: 20110129
  Receipt Date: 20100803
  Transmission Date: 20110831
  Serious: No
  Sender: FDA-Public Use
  Company Number: US-ABBOTT-10P-163-0661436-00

PATIENT
  Age: 29 Year
  Sex: Female

DRUGS (6)
  1. USP (RETENTION) 100 [Concomitant]
     Indication: PRODUCT USED FOR UNKNOWN INDICATION
  2. COLOCORT [Concomitant]
     Indication: GASTROINTESTINAL DISORDER
  3. ENTOCORT EC [Concomitant]
     Indication: PRODUCT USED FOR UNKNOWN INDICATION
     Route: 048
     Dates: start: 20100726
  4. BIRTH CONTROL PILLS [Concomitant]
     Indication: PRODUCT USED FOR UNKNOWN INDICATION
  5. HUMIRA [Suspect]
     Indication: COLITIS ULCERATIVE
     Dosage: 160 MG LOADING DOSE ON 26 JUL 2010
     Dates: start: 20100725
  6. FOLIC ACID [Concomitant]
     Indication: PRODUCT USED FOR UNKNOWN INDICATION

REACTIONS (1)
  - NASOPHARYNGITIS [None]
